FAERS Safety Report 10215394 (Version 2)
Quarter: 2014Q2

REPORT INFORMATION
  Report Type: Spontaneous
  Country: CH (occurrence: CH)
  Receive Date: 20140604
  Receipt Date: 20140604
  Transmission Date: 20141212
  Serious: Yes (Hospitalization, Other)
  Sender: FDA-Public Use
  Company Number: CH-009507513-1105USA03810

PATIENT
  Age: 20 Year
  Sex: Female
  Weight: 50 kg

DRUGS (4)
  1. JANUMET [Suspect]
     Dosage: 180 TABLET ONCE
     Route: 048
     Dates: start: 20110510, end: 20110510
  2. CIPRALEX [Suspect]
     Indication: PSYCHOTIC DISORDER
     Dosage: 20 MG, PER DAY
     Dates: start: 201012, end: 2011
  3. SOLIAN [Concomitant]
     Indication: PSYCHOTIC DISORDER
     Dosage: 400 MG, BID
     Route: 048
  4. TEMESTA [Concomitant]
     Indication: ANXIETY DISORDER
     Dosage: 1 MG DAILY
     Route: 048

REACTIONS (7)
  - Metabolic acidosis [Recovered/Resolved]
  - Continuous haemodiafiltration [Recovered/Resolved]
  - Blood lactic acid increased [Recovered/Resolved]
  - Suicide attempt [Recovered/Resolved]
  - Intentional overdose [Recovered/Resolved]
  - Vomiting [Recovered/Resolved]
  - Off label use [Recovered/Resolved]
